FAERS Safety Report 8826621 (Version 1)
Quarter: 2012Q4

REPORT INFORMATION
  Report Type: 
  Country: ES (occurrence: ES)
  Receive Date: 20121007
  Receipt Date: 20121007
  Transmission Date: 20130627
  Serious: Yes (Hospitalization)
  Sender: FDA-Public Use
  Company Number: PHHY2012ES085154

PATIENT
  Age: 37 Year
  Sex: Female

DRUGS (1)
  1. INTERFERON BETA-1B [Suspect]
     Indication: MULTIPLE SCLEROSIS RELAPSE

REACTIONS (13)
  - Thrombotic microangiopathy [Unknown]
  - Renal failure acute [Recovering/Resolving]
  - Nausea [Unknown]
  - Vomiting [Unknown]
  - Fatigue [Unknown]
  - Renal injury [Unknown]
  - Inflammation [Unknown]
  - Renal tubular atrophy [Unknown]
  - Microangiopathy [Unknown]
  - Proteinuria [Recovering/Resolving]
  - Oedema peripheral [Unknown]
  - Hypertension [Recovering/Resolving]
  - Arthralgia [Unknown]
